FAERS Safety Report 6569039-4 (Version None)
Quarter: 2010Q1

REPORT INFORMATION
  Report Type: 
  Country: None (occurrence: None)
  Receive Date: 20100203
  Receipt Date: 20100120
  Transmission Date: 20100710
  Serious: Yes (Hospitalization)
  Sender: FDA-Public Use
  Company Number: PHHY2010BE02854

PATIENT
  Sex: Male
  Weight: 72.9 kg

DRUGS (1)
  1. AFINITOR [Suspect]
     Indication: RENAL CELL CARCINOMA
     Dosage: 10 MG/ DAY
     Route: 048
     Dates: start: 20091224, end: 20100118

REACTIONS (5)
  - HEPATIC FAILURE [None]
  - HYPERGLYCAEMIA [None]
  - JAUNDICE [None]
  - PERFORMANCE STATUS DECREASED [None]
  - WEIGHT DECREASED [None]
